FAERS Safety Report 6438018-X (Version None)
Quarter: 2009Q4

REPORT INFORMATION
  Report Type: 
  Country: None (occurrence: None)
  Receive Date: 20091112
  Receipt Date: 20091102
  Transmission Date: 20100525
  Serious: Yes (Hospitalization)
  Sender: FDA-Public Use
  Company Number: RU-ELI_LILLY_AND_COMPANY-RU200911000076

PATIENT
  Age: 65 Year
  Sex: Female

DRUGS (2)
  1. HUMULIN R [Suspect]
     Indication: DIABETES MELLITUS
     Dosage: 14 U, 3/D
     Dates: start: 20090601, end: 20091020
  2. LANTUS [Concomitant]
     Indication: DIABETES MELLITUS
     Dosage: 42 U, EACH EVENING
     Dates: start: 20090601, end: 20091020

REACTIONS (2)
  - DIABETIC FOOT [None]
  - PAIN IN EXTREMITY [None]
